FAERS Safety Report 15982491 (Version 7)
Quarter: 2019Q3

REPORT INFORMATION
  Report Type: Spontaneous
  Country: US (occurrence: US)
  Receive Date: 20190219
  Receipt Date: 20190826
  Transmission Date: 20191004
  Serious: Yes (Other)
  Sender: FDA-Public Use
  Company Number: US-PFIZER INC-2019067078

PATIENT
  Age: 7 Year
  Sex: Female
  Weight: 70.76 kg

DRUGS (8)
  1. DILANTIN [Suspect]
     Active Substance: PHENYTOIN
     Indication: SEIZURE
     Dosage: 150 MG, 2X/DAY
     Route: 048
     Dates: start: 1995
  2. DILANTIN [Suspect]
     Active Substance: PHENYTOIN
     Dosage: 50 MG, DAILY
     Route: 048
  3. DILANTIN [Suspect]
     Active Substance: PHENYTOIN
     Dosage: 200 MG, 2X/DAY (50 MG CHEWABLE TABLET 4 IN THE AM AND 4 AT NIGHT)
  4. DILANTIN [Suspect]
     Active Substance: PHENYTOIN
     Dosage: 400 MG, DAILY
     Route: 048
  5. DPH [DIPHENHYDRAMINE HYDROCHLORIDE] [Concomitant]
     Indication: SEIZURE
     Dosage: 50 MG, 2X/DAY
  6. DPH [DIPHENHYDRAMINE HYDROCHLORIDE] [Concomitant]
     Dosage: 4 DF, 2X/DAY
  7. DPH [DIPHENHYDRAMINE HYDROCHLORIDE] [Concomitant]
     Dosage: 50 MG, UNK (8/D GAVE LEVELS IN 30^S)
  8. DPH [DIPHENHYDRAMINE HYDROCHLORIDE] [Concomitant]
     Dosage: 50 MG, UNK (50 MG 6/D (WHEN TAPERING WAS DOWN TO 3.5/DAY)

REACTIONS (6)
  - Scoliosis [Unknown]
  - Status epilepticus [Unknown]
  - Vitamin D deficiency [Not Recovered/Not Resolved]
  - Anticonvulsant drug level below therapeutic [Not Recovered/Not Resolved]
  - Drug ineffective [Unknown]
  - Performance status decreased [Unknown]

NARRATIVE: CASE EVENT DATE: 1997
